FAERS Safety Report 21662792 (Version 1)
Quarter: 2022Q4

REPORT INFORMATION
  Report Type: Spontaneous
  Country: GB (occurrence: GB)
  Receive Date: 20221130
  Receipt Date: 20221130
  Transmission Date: 20230113
  Serious: Yes (Other)
  Sender: FDA-Public Use
  Company Number: None

PATIENT
  Age: 89 Year
  Sex: Female
  Weight: 49.9 kg

DRUGS (12)
  1. APIXABAN [Suspect]
     Active Substance: APIXABAN
     Indication: Pain in extremity
     Dosage: 2.5 MILLIGRAM
     Route: 048
  2. ALENDRONIC ACID [Concomitant]
     Active Substance: ALENDRONIC ACID
     Dosage: 70 MILLIGRAM, QW(ON THURSDAY AS PER HOSPITAL)
     Route: 065
     Dates: start: 20221031
  3. AMOXICILLIN [Concomitant]
     Active Substance: AMOXICILLIN
     Dosage: 500 MILLIGRAM, TID
     Route: 065
     Dates: start: 20221028
  4. CALCIUM CARBONATE\CHOLECALCIFEROL [Concomitant]
     Active Substance: CALCIUM CARBONATE\CHOLECALCIFEROL
     Dosage: 1 DOSAGE FORM, BID
     Route: 065
     Dates: start: 20221019
  5. BETAMETHASONE [Concomitant]
     Active Substance: BETAMETHASONE
     Dosage: UNK UNK, BID(APPLY THINLY TWICE A DAY)
     Route: 065
     Dates: start: 20221005
  6. BEZAFIBRATE [Concomitant]
     Active Substance: BEZAFIBRATE
     Dosage: 400 MILLIGRAM, QD(1 DAILY)
     Route: 065
     Dates: start: 20220908
  7. BISOPROLOL [Concomitant]
     Active Substance: BISOPROLOL
     Dosage: 3.75 MILLIGRAM, QD
     Route: 065
     Dates: start: 20220908
  8. CO AMILOFRUSE [Concomitant]
     Active Substance: AMILORIDE HYDROCHLORIDE\FUROSEMIDE
     Dosage: 1 DOSAGE FORM, QD(IN THE MORNING  2.5MG/20MG)
     Route: 065
     Dates: start: 20220908
  9. CODEINE [Concomitant]
     Active Substance: CODEINE
     Dosage: UNK(1-2 EVERY 4 HOURS)
     Route: 065
     Dates: start: 20221005
  10. Cetraben [Concomitant]
     Dosage: UNK, BID(APPLY TO THE AFFECTED AREA TWICE A DAY AS PER HOSPITAL)
     Route: 065
     Dates: start: 20220908
  11. POLYETHYLENE GLYCOL 3350\POTASSIUM CHLORIDE\SODIUM BICARBONATE\SODIUM [Concomitant]
     Active Substance: POLYETHYLENE GLYCOL 3350\POTASSIUM CHLORIDE\SODIUM BICARBONATE\SODIUM CHLORIDE
     Dosage: 1 DOSAGE FORM, PRN
     Route: 065
     Dates: start: 20221031
  12. ACETAMINOPHEN [Concomitant]
     Active Substance: ACETAMINOPHEN
     Dosage: 500 MILLIGRAM, PRN(1-2 TABLETS)
     Route: 065
     Dates: start: 20221031

REACTIONS (1)
  - Increased tendency to bruise [Recovering/Resolving]
